FAERS Safety Report 22300192 (Version 7)
Quarter: 2023Q4

REPORT INFORMATION
  Report Type: Report from Study
  Country: BE (occurrence: None)
  Receive Date: 20230509
  Receipt Date: 20231031
  Transmission Date: 20240110
  Serious: Yes (Hospitalization)
  Sender: FDA-Public Use
  Company Number: BE-ROCHE-3337932

PATIENT
  Age: 52 Year
  Sex: Female
  Weight: 86 kg

DRUGS (13)
  1. OCRELIZUMAB [Suspect]
     Active Substance: OCRELIZUMAB
     Indication: Multiple sclerosis
     Dosage: DOSE LAST STUDY DRUG ADMIN PRIOR AE AND SAE IS 580 MG. ON 23/JAN/2023, FROM 12:35 TO 14:42, SHE RECE
     Route: 042
     Dates: start: 20230123
  2. OCRELIZUMAB [Suspect]
     Active Substance: OCRELIZUMAB
     Dosage: TOTAL VOLUME ADMINISTERED: 500 ML.
     Route: 042
     Dates: start: 20230703, end: 20230703
  3. MOVICOL [Concomitant]
     Active Substance: POLYETHYLENE GLYCOL 3350\POTASSIUM CHLORIDE\SODIUM BICARBONATE\SODIUM CHLORIDE
     Indication: Constipation
     Dosage: 1 SACHET
     Route: 048
     Dates: start: 20151202
  4. LISINOPRIL [Concomitant]
     Active Substance: LISINOPRIL
     Indication: Hypertension
     Route: 048
     Dates: start: 20160229
  5. CHOLECALCIFEROL [Concomitant]
     Active Substance: CHOLECALCIFEROL
     Dosage: MEDICATION DOSE: 1 AMPULE
     Route: 048
     Dates: start: 20181115
  6. RIVOTRIL [Concomitant]
     Active Substance: CLONAZEPAM
     Indication: Muscle spasms
     Route: 048
     Dates: start: 20210310
  7. IBUPROFEN [Concomitant]
     Active Substance: IBUPROFEN
     Indication: Mammoplasty
     Route: 048
     Dates: start: 20230314, end: 20230318
  8. FOLIC ACID [Concomitant]
     Active Substance: FOLIC ACID
     Route: 048
     Dates: start: 202304
  9. BEFACT FORTE [Concomitant]
     Route: 048
     Dates: start: 2008, end: 2012
  10. FUCICORT LIPID [Concomitant]
     Indication: Subcutaneous abscess
     Route: 062
     Dates: start: 20221123, end: 20221212
  11. FRAMYCETIN SULFATE\NAPHAZOLINE NITRATE\PREDNISOLONE ACETATE [Concomitant]
     Active Substance: FRAMYCETIN SULFATE\NAPHAZOLINE NITRATE\PREDNISOLONE ACETATE
     Indication: Coronavirus infection
     Route: 045
     Dates: start: 20221226, end: 20230103
  12. ACETAMINOPHEN [Concomitant]
     Active Substance: ACETAMINOPHEN
     Indication: Mammoplasty
     Route: 048
     Dates: start: 20230314, end: 20230318
  13. ACETAMINOPHEN [Concomitant]
     Active Substance: ACETAMINOPHEN
     Indication: Coronavirus infection
     Route: 048
     Dates: start: 20221226, end: 20221230

REACTIONS (3)
  - Staphylococcal sepsis [Recovered/Resolved]
  - Cystitis [Recovered/Resolved]
  - Pyelonephritis [Recovered/Resolved]

NARRATIVE: CASE EVENT DATE: 20230417
